FAERS Safety Report 8578281-2 (Version None)
Quarter: 2012Q3

REPORT INFORMATION
  Report Type: 
  Country: None (occurrence: None)
  Receive Date: 20120808
  Receipt Date: 20120802
  Transmission Date: 20120928
  Serious: Yes (Hospitalization)
  Sender: FDA-Public Use
  Company Number: NO-EISAI INC-E2020-11154-SPO-NO

PATIENT
  Sex: Female

DRUGS (5)
  1. ARICEPT [Suspect]
     Indication: DEMENTIA ALZHEIMER'S TYPE
     Route: 048
     Dates: end: 20120701
  2. NITROGLYCERIN [Concomitant]
     Dosage: UNKNOWN
  3. CLOTRIMAZOLE [Concomitant]
     Dosage: UNKNOWN
  4. AFIPRAN [Concomitant]
     Dosage: UNKNOWN
  5. RAMIPRIL [Interacting]
     Indication: HYPERTENSION
     Route: 048
     Dates: end: 20120710

REACTIONS (2)
  - DRUG INTERACTION [None]
  - RENAL FAILURE [None]
